FAERS Safety Report 14350399 (Version 1)
Quarter: 2018Q1

REPORT INFORMATION
  Report Type: Spontaneous
  Country: US (occurrence: US)
  Receive Date: 20180102
  Receipt Date: 20180102
  Transmission Date: 20180509
  Serious: Yes (Disabling, Other)
  Sender: FDA-Public Use
  Company Number: None

PATIENT
  Age: 29 Year
  Sex: Female
  Weight: 77.11 kg

DRUGS (2)
  1. LEVOFLOXACIN 500MG TABLET [Suspect]
     Active Substance: LEVOFLOXACIN
     Indication: URINARY TRACT INFECTION
     Route: 048
     Dates: start: 20171222
  2. IBUPROFEN 800MG TABLET [Suspect]
     Active Substance: IBUPROFEN
     Dosage: 800 MG Q8H PRN PO
     Route: 048
     Dates: start: 20171223

REACTIONS (2)
  - Pain [None]
  - Hypoaesthesia [None]

NARRATIVE: CASE EVENT DATE: 20171223
